FAERS Safety Report 8291449-8 (Version None)
Quarter: 2012Q2

REPORT INFORMATION
  Report Type: 
  Country: None (occurrence: None)
  Receive Date: 20120412
  Receipt Date: 20120403
  Transmission Date: 20120825
  Serious: Yes (Other)
  Sender: FDA-Public Use
  Company Number: A0972533A

PATIENT

DRUGS (1)
  1. ASPIRIN + CAFFEINE + SALICYLAMIDE (FORMULATION UNKNOWN) (ASPIRIN+CAFFE [Suspect]

REACTIONS (2)
  - HEADACHE [None]
  - DRUG DEPENDENCE [None]
